FAERS Safety Report 12916012 (Version 1)
Quarter: 2016Q4

REPORT INFORMATION
  Report Type: Spontaneous
  Country: US (occurrence: US)
  Receive Date: 20161104
  Receipt Date: 20161104
  Transmission Date: 20170207
  Serious: No
  Sender: FDA-Public Use
  Company Number: US-SA-2016SA073839

PATIENT
  Sex: Female

DRUGS (1)
  1. UNISOM SLEEPTABS [Suspect]
     Active Substance: DOXYLAMINE SUCCINATE
     Route: 065
     Dates: start: 20160409, end: 20160409

REACTIONS (7)
  - Malaise [Not Recovered/Not Resolved]
  - Therapeutic response decreased [Unknown]
  - Fear [Recovering/Resolving]
  - Extra dose administered [Unknown]
  - Product container seal issue [Unknown]
  - Nausea [Recovering/Resolving]
  - Product container issue [Unknown]

NARRATIVE: CASE EVENT DATE: 20160409
